FAERS Safety Report 24687217 (Version 1)
Quarter: 2024Q4

REPORT INFORMATION
  Report Type: Report from Study
  Country: CA (occurrence: CA)
  Receive Date: 20241202
  Receipt Date: 20241202
  Transmission Date: 20250114
  Serious: Yes (Hospitalization)
  Sender: ABBVIE
  Company Number: CA-ABBVIE-6026341

PATIENT
  Age: 68 Year
  Sex: Male

DRUGS (2)
  1. RINVOQ [Suspect]
     Active Substance: UPADACITINIB
     Indication: Crohn^s disease
     Dosage: LAST ADMIN DATE: 2024
     Route: 048
     Dates: start: 20240818
  2. RINVOQ [Suspect]
     Active Substance: UPADACITINIB
     Indication: Crohn^s disease
     Dosage: FIRST ADMIN DATE: 2024
     Route: 048

REACTIONS (2)
  - Hepatic function abnormal [Recovering/Resolving]
  - Bacterial infection index increased [Unknown]

NARRATIVE: CASE EVENT DATE: 20240101
